FAERS Safety Report 6434442-X (Version None)
Quarter: 2009Q4

REPORT INFORMATION
  Report Type: 
  Country: None (occurrence: None)
  Receive Date: 20091110
  Receipt Date: 20091029
  Transmission Date: 20100525
  Serious: Yes (Hospitalization)
  Sender: FDA-Public Use
  Company Number: NL-PFIZER INC-2009280261

PATIENT
  Age: 49 Year
  Sex: Male
  Weight: 95 kg

DRUGS (7)
  1. CP-690,550 [Suspect]
     Indication: KIDNEY TRANSPLANT REJECTION
     Dosage: UNK
     Route: 048
     Dates: start: 20090130, end: 20091007
  2. PREDNISOLONE AND PREDNISOLONE STEAGLATE [Suspect]
  3. MYCOPHENOLATE MOFETIL [Suspect]
     Dosage: 500 MG, 2X/DAY
     Route: 048
     Dates: start: 20090130, end: 20091007
  4. PREDNISONE [Concomitant]
     Dosage: 5 MG, UNK
     Dates: end: 20091007
  5. ATORVASTATIN CALCIUM [Concomitant]
     Dosage: 20 MG, UNK
     Route: 048
     Dates: start: 20090303
  6. METOPROLOL [Concomitant]
     Dosage: 50 MG, UNK
     Route: 048
     Dates: start: 20090707
  7. PANTOPRAZOLE SODIUM [Concomitant]
     Dosage: 40 MG, UNK
     Route: 048
     Dates: start: 20090129

REACTIONS (4)
  - ABDOMINAL ABSCESS [None]
  - BK VIRUS INFECTION [None]
  - CYTOMEGALOVIRUS INFECTION [None]
  - JC VIRUS INFECTION [None]
